FAERS Safety Report 9360220 (Version 1)
Quarter: 2013Q2

REPORT INFORMATION
  Report Type: Spontaneous
  Country: US (occurrence: US)
  Receive Date: 20130621
  Receipt Date: 20130621
  Transmission Date: 20140414
  Serious: No
  Sender: FDA-Public Use
  Company Number: US-ASTRAZENECA-2013SE42873

PATIENT
  Age: 191 Month
  Sex: Female
  Weight: 49.9 kg

DRUGS (1)
  1. SYMBICORT [Suspect]
     Indication: ASTHMA
     Dosage: 80 MCG 2 PUFFS, TWO TIMES A DAY
     Route: 055
     Dates: start: 20130507, end: 201305

REACTIONS (3)
  - Adverse drug reaction [Unknown]
  - Headache [Recovered/Resolved]
  - Nausea [Unknown]
